FAERS Safety Report 8268876-8 (Version None)
Quarter: 2012Q1

REPORT INFORMATION
  Report Type: 
  Country: None (occurrence: None)
  Receive Date: 20120327
  Receipt Date: 20090915
  Transmission Date: 20120608
  Serious: Yes (Other)
  Sender: FDA-Public Use
  Company Number: PHHY2009US40728

PATIENT
  Age: 53 Year
  Sex: Female

DRUGS (2)
  1. GLEEVEC [Suspect]
     Indication: CHRONIC MYELOID LEUKAEMIA
     Dosage: 400 MG,; 1100 MG,
  2. GLEEVEC [Suspect]
     Indication: RECURRENT CANCER
     Dosage: 400 MG,; 1100 MG,

REACTIONS (11)
  - PAIN IN EXTREMITY [None]
  - ABDOMINAL DISCOMFORT [None]
  - EYE HAEMORRHAGE [None]
  - EYE OEDEMA [None]
  - JOINT SWELLING [None]
  - DYSPEPSIA [None]
  - NAUSEA [None]
  - OCULAR HYPERAEMIA [None]
  - FATIGUE [None]
  - MUSCLE SPASMS [None]
  - RASH [None]
